FAERS Safety Report 7767504 (Version 15)
Quarter: 2014Q1

REPORT INFORMATION
  Report Type: Spontaneous
  Country: US (occurrence: US)
  Receive Date: 20110120
  Receipt Date: 20140225
  Transmission Date: 20141002
  Serious: Yes (Hospitalization, Disabling, Other)
  Sender: FDA-Public Use
  Company Number: US-ASTRAZENECA-2011SE01696

PATIENT
  Age: 54 Year
  Sex: Female
  Weight: 45.4 kg

DRUGS (7)
  1. NEXIUM [Suspect]
     Indication: GASTROINTESTINAL DISORDER
     Route: 048
  2. NEXIUM [Suspect]
     Indication: HELICOBACTER GASTRITIS
     Route: 048
  3. NEXIUM [Suspect]
     Indication: GASTROOESOPHAGEAL REFLUX DISEASE
     Route: 048
  4. PRILOSEC [Suspect]
     Indication: GASTROINTESTINAL DISORDER
     Dosage: DAILY
     Route: 048
     Dates: start: 20140120
  5. PRILOSEC [Suspect]
     Indication: HELICOBACTER GASTRITIS
     Dosage: DAILY
     Route: 048
     Dates: start: 20140120
  6. PRILOSEC [Suspect]
     Indication: GASTROOESOPHAGEAL REFLUX DISEASE
     Dosage: DAILY
     Route: 048
     Dates: start: 20140120
  7. SULFA [Suspect]
     Route: 065

REACTIONS (31)
  - Spinal fracture [Unknown]
  - Intervertebral disc injury [Unknown]
  - Bladder cancer [Unknown]
  - Immobile [Unknown]
  - Intervertebral disc protrusion [Unknown]
  - Chest pain [Unknown]
  - Myocardial infarction [Unknown]
  - Dyspnoea [Unknown]
  - Procedural complication [Unknown]
  - Foot fracture [Unknown]
  - Back pain [Unknown]
  - Gastric disorder [Unknown]
  - Adverse event [Unknown]
  - Gait disturbance [Unknown]
  - Back disorder [Unknown]
  - Helicobacter infection [Unknown]
  - Pneumonia [Unknown]
  - Hypertension [Unknown]
  - Weight decreased [Unknown]
  - Decreased appetite [Not Recovered/Not Resolved]
  - Local swelling [Unknown]
  - Muscle spasms [Unknown]
  - Malaise [Unknown]
  - Insomnia [Unknown]
  - Diarrhoea [Unknown]
  - Malaise [Not Recovered/Not Resolved]
  - Nausea [Not Recovered/Not Resolved]
  - Malaise [Not Recovered/Not Resolved]
  - Hypersensitivity [Recovered/Resolved]
  - Drug dose omission [Not Recovered/Not Resolved]
  - Drug hypersensitivity [Unknown]
